FAERS Safety Report 18289467 (Version 1)
Quarter: 2020Q3

REPORT INFORMATION
  Report Type: Spontaneous
  Country: US (occurrence: US)
  Receive Date: 20200921
  Receipt Date: 20200921
  Transmission Date: 20201103
  Serious: Yes (Hospitalization)
  Sender: FDA-Public Use
  Company Number: None

PATIENT
  Age: 57 Year
  Sex: Female
  Weight: 55.9 kg

DRUGS (2)
  1. AMPICILLIN [Suspect]
     Active Substance: AMPICILLIN
     Indication: BACTERAEMIA
     Route: 042
     Dates: start: 20200828, end: 20200917
  2. PENICILLIN [Concomitant]
     Active Substance: PENICILLIN
     Dates: start: 20200916, end: 20200917

REACTIONS (3)
  - Delirium [None]
  - Confusional state [None]
  - Vascular device infection [None]

NARRATIVE: CASE EVENT DATE: 20200915
